FAERS Safety Report 6430965-8 (Version None)
Quarter: 2009Q4

REPORT INFORMATION
  Report Type: 
  Country: None (occurrence: None)
  Receive Date: 20091106
  Receipt Date: 20091027
  Transmission Date: 20100525
  Serious: Yes (Other)
  Sender: FDA-Public Use
  Company Number: ES-PFIZER INC-2009289700

PATIENT
  Age: 60 Year
  Sex: Male

DRUGS (5)
  1. VFEND [Suspect]
     Dosage: 200 MG, 2X/DAY
     Route: 042
     Dates: start: 20090514, end: 20090526
  2. ECALTA [Suspect]
     Indication: SYSTEMIC CANDIDA
     Dosage: 1000 MG, 1X/DAY
     Route: 042
     Dates: start: 20090508, end: 20090529
  3. ATORVASTATIN CALCIUM [Suspect]
     Dosage: UNK
     Route: 048
     Dates: start: 20090330, end: 20090529
  4. COTRIM [Suspect]
     Indication: INFECTION
     Dosage: UNK
     Route: 048
     Dates: start: 20090519, end: 20090529
  5. DEXCHLORPHENIRAMINE MALEATE [Suspect]
     Indication: PRURITUS
     Dosage: 5 MG, 3X/DAY
     Route: 042
     Dates: start: 20090330, end: 20090529

REACTIONS (1)
  - HEPATITIS CHOLESTATIC [None]
